FAERS Safety Report 5743519-3 (Version None)
Quarter: 2008Q2

REPORT INFORMATION
  Report Type: 
  Country: None (occurrence: None)
  Receive Date: 20080520
  Receipt Date: 20080508
  Transmission Date: 20081010
  Serious: Yes (Death)
  Sender: FDA-Public Use
  Company Number: JP-BRISTOL-MYERS SQUIBB COMPANY-14194906

PATIENT
  Age: 76 Year
  Sex: Female

DRUGS (5)
  1. GATIFLOXACIN [Suspect]
     Indication: ATYPICAL MYCOBACTERIAL INFECTION
     Route: 048
     Dates: start: 20080411, end: 20080417
  2. KLARICID [Concomitant]
     Route: 048
  3. CODEINE SUL TAB [Concomitant]
     Route: 048
  4. MAGNESIUM OXIDE [Concomitant]
     Route: 048
  5. SELBEX [Concomitant]
     Route: 048

REACTIONS (1)
  - HYPOGLYCAEMIA [None]
